FAERS Safety Report 9159351 (Version 1)
Quarter: 2013Q1

REPORT INFORMATION
  Report Type: Report from Study
  Country: JP (occurrence: JP)
  Receive Date: 20130313
  Receipt Date: 20130313
  Transmission Date: 20140127
  Serious: Yes (Other)
  Sender: FDA-Public Use
  Company Number: JP-JNJFOC-20130104646

PATIENT
  Age: 30 Year
  Sex: Female
  Weight: 45 kg

DRUGS (4)
  1. TRAMCET [Suspect]
     Indication: PROCEDURAL PAIN
     Dosage: 1 PER DAY
     Route: 048
     Dates: start: 20121213, end: 20121213
  2. FLOMOX [Concomitant]
     Indication: PROPHYLAXIS
     Dosage: 1 PER DAY
     Route: 048
     Dates: start: 20121213, end: 20121216
  3. LACTEC [Concomitant]
     Indication: VOMITING
     Dosage: 1 PER 1 DAY
     Route: 041
     Dates: start: 20121214, end: 20121214
  4. LACTEC [Concomitant]
     Indication: NAUSEA
     Dosage: 1 PER 1 DAY
     Route: 041
     Dates: start: 20121214, end: 20121214

REACTIONS (4)
  - Nausea [Recovered/Resolved]
  - Vomiting [Recovered/Resolved]
  - Dizziness [Recovered/Resolved]
  - Eating disorder [Recovered/Resolved]
